FAERS Safety Report 4884044-1 (Version None)
Quarter: 2005Q4

REPORT INFORMATION
  Report Type: 
  Country: None (occurrence: None)
  Receive Date: 20051201
  Receipt Date: 20050906
  Transmission Date: 20060501
  Serious: No
  Sender: FDA-Public Use
  Company Number: 2005PV001866

PATIENT
  Sex: Male

DRUGS (1)
  1. BYETTA [Suspect]
     Dosage: 5 MCG; BID; SC
     Route: 058
     Dates: start: 20050101

REACTIONS (4)
  - ABDOMINAL DISCOMFORT [None]
  - ABDOMINAL DISTENSION [None]
  - DECREASED APPETITE [None]
  - DIARRHOEA [None]
